FAERS Safety Report 5903593-8 (Version None)
Quarter: 2008Q3

REPORT INFORMATION
  Report Type: 
  Country: None (occurrence: None)
  Receive Date: 20080930
  Receipt Date: 20080919
  Transmission Date: 20090109
  Serious: Yes (Hospitalization)
  Sender: FDA-Public Use
  Company Number: CO-PFIZER INC-2008064547

PATIENT
  Sex: Male

DRUGS (1)
  1. SUTENT [Suspect]
     Indication: LUNG NEOPLASM MALIGNANT
     Dosage: TEXT:1 TABLETS-FREQ:DAILY:EVERY DAY
     Route: 048
     Dates: start: 20080520

REACTIONS (1)
  - ELECTROLYTE IMBALANCE [None]
